FAERS Safety Report 9123382 (Version 1)
Quarter: 2013Q1

REPORT INFORMATION
  Report Type: Report from Study
  Country: ES (occurrence: ES)
  Receive Date: 20130114
  Receipt Date: 20130114
  Transmission Date: 20140127
  Serious: Yes (Other)
  Sender: FDA-Public Use
  Company Number: ES-ROCHE-1171150

PATIENT
  Sex: 0

DRUGS (5)
  1. BEVACIZUMAB [Suspect]
     Indication: RECTAL CANCER
     Route: 065
  2. CAPECITABINE [Suspect]
     Indication: RECTAL CANCER
     Dosage: 625 TO 825 MG/ME2
     Route: 065
  3. CETUXIMAB [Suspect]
     Indication: RECTAL CANCER
     Route: 065
  4. IRINOTECAN [Suspect]
     Indication: RECTAL CANCER
     Route: 065
  5. OXALIPLATIN [Suspect]
     Indication: RECTAL CANCER
     Route: 065

REACTIONS (2)
  - Proctitis [Recovered/Resolved]
  - Diarrhoea [Recovered/Resolved]
